FAERS Safety Report 12767217 (Version 1)
Quarter: 2016Q3

REPORT INFORMATION
  Report Type: Spontaneous
  Country: FR (occurrence: FR)
  Receive Date: 20160921
  Receipt Date: 20160921
  Transmission Date: 20161109
  Serious: Yes (Hospitalization)
  Sender: FDA-Public Use
  Company Number: FR-SA-2016SA171068

PATIENT
  Age: 78 Year
  Sex: Male

DRUGS (9)
  1. FIRMAGON [Concomitant]
     Active Substance: DEGARELIX ACETATE
     Dosage: DOSE: 1 INJECTION
     Route: 065
  2. JEVTANA [Suspect]
     Active Substance: CABAZITAXEL
     Indication: PROSTATE CANCER METASTATIC
     Dosage: 2 COURSES,?DOSE?UNKNOWN
     Route: 042
     Dates: start: 20160811, end: 20160811
  3. TRIATEC [Concomitant]
     Active Substance: RAMIPRIL
     Route: 065
  4. GAVISCON [Concomitant]
     Active Substance: ALUMINUM HYDROXIDE\MAGNESIUM CARBONATE
     Route: 065
  5. JEVTANA [Suspect]
     Active Substance: CABAZITAXEL
     Indication: PROSTATE CANCER METASTATIC
     Dosage: 2 COURSES,?DOSE?UNKNOWN
     Route: 042
     Dates: start: 20160728, end: 20160728
  6. MOVICOL [Concomitant]
     Active Substance: POLYETHYLENE GLYCOL 3350\POTASSIUM CHLORIDE\SODIUM BICARBONATE\SODIUM CHLORIDE
     Route: 065
  7. PARACETAMOL CODEINE [Concomitant]
     Active Substance: ACETAMINOPHEN\CODEINE PHOSPHATE
     Indication: PAIN
     Route: 065
  8. INEXIUM [Concomitant]
     Active Substance: ESOMEPRAZOLE
     Route: 065
  9. XTANDI [Concomitant]
     Active Substance: ENZALUTAMIDE
     Route: 065

REACTIONS (10)
  - Constipation [Unknown]
  - Arrhythmia [Unknown]
  - Flatulence [Unknown]
  - General physical health deterioration [Unknown]
  - Malaise [Unknown]
  - Blood pressure decreased [Unknown]
  - Megacolon [Unknown]
  - Asthenia [Unknown]
  - Ejection fraction [Unknown]
  - Tachycardia [Unknown]

NARRATIVE: CASE EVENT DATE: 20160822
